FAERS Safety Report 20062775 (Version 1)
Quarter: 2021Q4

REPORT INFORMATION
  Report Type: Spontaneous
  Country: CA (occurrence: CA)
  Receive Date: 20211112
  Receipt Date: 20211112
  Transmission Date: 20220303
  Serious: Yes (Life-Threatening, Other)
  Sender: FDA-Public Use
  Company Number: CA-TARO-2021TAR01131

PATIENT
  Age: 74 Year
  Sex: Female

DRUGS (21)
  1. WARFARIN [Suspect]
     Active Substance: WARFARIN
     Indication: Embolic stroke
     Dosage: UNK
     Dates: start: 2001, end: 202107
  2. WARFARIN [Suspect]
     Active Substance: WARFARIN
     Indication: Arteriosclerosis coronary artery
  3. WARFARIN [Suspect]
     Active Substance: WARFARIN
     Indication: Cerebrovascular accident
  4. TOZINAMERAN [Suspect]
     Active Substance: TOZINAMERAN
     Indication: COVID-19 immunisation
     Dosage: UNK
     Route: 030
     Dates: start: 20210605, end: 20210605
  5. TOZINAMERAN [Suspect]
     Active Substance: TOZINAMERAN
     Dosage: UNK,ON THE LEFT ARM
     Route: 030
     Dates: start: 20210327, end: 20210327
  6. AMLODIPINE BESYLATE [Concomitant]
     Active Substance: AMLODIPINE BESYLATE
     Indication: Hypertension
     Dosage: UNK
     Route: 065
     Dates: start: 2018
  7. ATORVASTATIN CALCIUM [Concomitant]
     Active Substance: ATORVASTATIN CALCIUM
     Indication: Hyperlipidaemia
     Dosage: UNK
     Route: 065
     Dates: start: 2018
  8. METOPROLOL [Concomitant]
     Active Substance: METOPROLOL
     Indication: Cardiomyopathy
     Dosage: UNK
     Route: 065
     Dates: start: 2013
  9. RAMIPRIL [Concomitant]
     Active Substance: RAMIPRIL
     Indication: Hypertension
     Dosage: UNK
     Route: 065
     Dates: start: 2015
  10. RANITIDINE [Concomitant]
     Active Substance: RANITIDINE
     Indication: Reflux gastritis
     Dosage: UNK
     Route: 065
     Dates: start: 2012
  11. TRAZODONE [Concomitant]
     Active Substance: TRAZODONE HYDROCHLORIDE
     Indication: Insomnia
     Dosage: UNK
     Route: 065
     Dates: start: 2014, end: 2021
  12. NAPROXEN [Concomitant]
     Active Substance: NAPROXEN
     Indication: Product used for unknown indication
     Dosage: UNK
     Route: 065
  13. Murtazapine [Concomitant]
     Indication: Product used for unknown indication
     Dosage: UNK
     Route: 065
  14. HYDRALAZINE [Concomitant]
     Active Substance: HYDRALAZINE HYDROCHLORIDE
     Indication: Product used for unknown indication
     Dosage: UNK
     Route: 065
  15. ASPIRIN [Concomitant]
     Active Substance: ASPIRIN
     Indication: Product used for unknown indication
     Dosage: UNK
     Route: 065
  16. ENOXAPARIN [Concomitant]
     Active Substance: ENOXAPARIN
     Indication: Thrombosis prophylaxis
     Route: 065
  17. EZETIMIBE [Concomitant]
     Active Substance: EZETIMIBE
     Indication: Product used for unknown indication
     Dosage: UNK
     Route: 065
  18. BACLOFEN [Concomitant]
     Active Substance: BACLOFEN
     Indication: Muscle spasms
     Route: 065
  19. DICLOFENAC [Concomitant]
     Active Substance: DICLOFENAC
     Indication: Pain
     Dosage: UNK
     Route: 065
  20. TYLENOL [Concomitant]
     Active Substance: ACETAMINOPHEN
     Indication: Product used for unknown indication
     Route: 065
  21. CODEINE [Concomitant]
     Active Substance: CODEINE
     Indication: Product used for unknown indication
     Route: 065

REACTIONS (21)
  - Hemiplegia [Unknown]
  - Haemorrhagic stroke [Unknown]
  - Haemorrhage intracranial [Unknown]
  - Pericardial haemorrhage [Not Recovered/Not Resolved]
  - Mitral valve incompetence [Unknown]
  - Spine malformation [Unknown]
  - Cerebral ischaemia [Unknown]
  - Encephalomalacia [Not Recovered/Not Resolved]
  - Antiphospholipid syndrome [Unknown]
  - Vasogenic cerebral oedema [Unknown]
  - Thyroid calcification [Unknown]
  - Inappropriate schedule of product administration [Unknown]
  - Muscular weakness [Unknown]
  - Dysarthria [Unknown]
  - International normalised ratio decreased [Unknown]
  - Visual impairment [Unknown]
  - Blood calcium decreased [Unknown]
  - Blood phosphorus decreased [Not Recovered/Not Resolved]
  - Lymphocyte count decreased [Unknown]
  - Platelet count decreased [Unknown]
  - Urine leukocyte esterase positive [Not Recovered/Not Resolved]

NARRATIVE: CASE EVENT DATE: 20210605
